FAERS Safety Report 8739356 (Version 4)
Quarter: 2013Q3

REPORT INFORMATION
  Report Type: Report from Study
  Country: BE (occurrence: BE)
  Receive Date: 20120823
  Receipt Date: 20130802
  Transmission Date: 20140515
  Serious: Yes (Other)
  Sender: FDA-Public Use
  Company Number: PHHY2012BE070093

PATIENT
  Age: 40 Year
  Sex: Female

DRUGS (6)
  1. GILENYA [Suspect]
     Indication: MULTIPLE SCLEROSIS
     Dosage: 0.5 MG, QD
     Route: 048
     Dates: start: 20120305, end: 20120816
  2. GILENYA [Suspect]
     Dosage: 0.5 MG, QD
     Route: 048
     Dates: start: 20130722
  3. WELLBUTRIN                         /00700502/ [Concomitant]
     Dosage: 150 MG, QD
  4. TRAZOLAN [Concomitant]
  5. DAFALGAN [Concomitant]
     Indication: PAIN
     Dosage: 500 MG OR 1 G IN PAIN
  6. OMEPRAZOL [Concomitant]
     Dosage: 40 MG, QD

REACTIONS (11)
  - Chest pain [Not Recovered/Not Resolved]
  - Salivary hypersecretion [Recovered/Resolved]
  - Neck pain [Recovered/Resolved]
  - Musculoskeletal pain [Recovered/Resolved]
  - Eructation [Recovered/Resolved]
  - Stress [Recovered/Resolved]
  - Quality of life decreased [Recovered/Resolved]
  - Chest discomfort [Recovered/Resolved]
  - Abdominal pain upper [Recovered/Resolved]
  - Heart rate decreased [Recovered/Resolved]
  - Dizziness [Recovered/Resolved]
